FAERS Safety Report 25017957 (Version 1)
Quarter: 2025Q1

REPORT INFORMATION
  Report Type: Spontaneous
  Country: JP (occurrence: JP)
  Receive Date: 20250227
  Receipt Date: 20250227
  Transmission Date: 20250409
  Serious: Yes (Death)
  Sender: RECORDATI
  Company Number: JP-RECORDATI RARE DISEASE INC.-2025001199

PATIENT
  Age: 60 Year
  Sex: Male
  Weight: 89.8 kg

DRUGS (8)
  1. OSILODROSTAT [Suspect]
     Active Substance: OSILODROSTAT
     Indication: Phaeochromocytoma
  2. DOXAZOSIN [Concomitant]
     Active Substance: DOXAZOSIN MESYLATE
     Indication: Blood catecholamines increased
     Route: 048
  3. DOXAZOSIN [Concomitant]
     Active Substance: DOXAZOSIN MESYLATE
     Route: 048
  4. PHENTOLAMINE [Concomitant]
     Active Substance: PHENTOLAMINE
     Indication: Blood catecholamines increased
  5. PHENTOLAMINE [Concomitant]
     Active Substance: PHENTOLAMINE
  6. METHYLPREDNISOLONE SODIUM SUCCINATE [Concomitant]
     Active Substance: METHYLPREDNISOLONE SODIUM SUCCINATE
     Indication: Traumatic lung injury
     Route: 042
  7. METHYLPREDNISOLONE SODIUM SUCCINATE [Concomitant]
     Active Substance: METHYLPREDNISOLONE SODIUM SUCCINATE
     Route: 042
  8. SULFAMETHOXAZOLE\TRIMETHOPRIM [Concomitant]
     Active Substance: SULFAMETHOXAZOLE\TRIMETHOPRIM
     Indication: Phaeochromocytoma

REACTIONS (1)
  - Cardio-respiratory arrest [Fatal]
